FAERS Safety Report 19170749 (Version 2)
Quarter: 2021Q2

REPORT INFORMATION
  Report Type: Spontaneous
  Country: FR (occurrence: FR)
  Receive Date: 20210422
  Receipt Date: 20210505
  Transmission Date: 20210717
  Serious: Yes (Other)
  Sender: FDA-Public Use
  Company Number: FR-PFIZER INC-2021425263

PATIENT
  Age: 50 Year
  Sex: Female

DRUGS (6)
  1. OXALIPLATIN. [Suspect]
     Active Substance: OXALIPLATIN
     Indication: COLON CANCER
     Dosage: UNK
     Dates: start: 201304
  2. OXALIPLATIN. [Suspect]
     Active Substance: OXALIPLATIN
     Indication: MALIGNANT PERITONEAL NEOPLASM
     Dosage: 360 MG/M2
     Route: 033
  3. FLUOROURACIL. [Concomitant]
     Active Substance: FLUOROURACIL
     Indication: MALIGNANT PERITONEAL NEOPLASM
  4. FOLINIC ACID [Concomitant]
     Active Substance: LEUCOVORIN
     Indication: COLON CANCER
     Dosage: UNK
     Dates: start: 201304
  5. FLUOROURACIL. [Concomitant]
     Active Substance: FLUOROURACIL
     Indication: COLON CANCER
     Dosage: UNK
     Dates: start: 201304
  6. FOLINIC ACID [Concomitant]
     Active Substance: LEUCOVORIN
     Indication: MALIGNANT PERITONEAL NEOPLASM

REACTIONS (4)
  - Blindness [Recovered/Resolved]
  - Neuropathy peripheral [Recovered/Resolved]
  - Paraesthesia [Recovered/Resolved]
  - Optic neuritis [Recovered/Resolved]

NARRATIVE: CASE EVENT DATE: 201304
